FAERS Safety Report 24784109 (Version 1)
Quarter: 2024Q4

REPORT INFORMATION
  Report Type: Spontaneous
  Country: US (occurrence: None)
  Receive Date: 20241227
  Receipt Date: 20241227
  Transmission Date: 20250115
  Serious: Yes (unspecified)
  Sender: Public
  Company Number: None

PATIENT
  Age: 98 Year
  Sex: Female
  Weight: 33.75 kg

DRUGS (9)
  1. OLANZAPINE [Suspect]
     Active Substance: OLANZAPINE
     Indication: Nausea
     Dosage: 1 TABLET TWICE A DAY ORAL ?
     Route: 048
     Dates: start: 20241213, end: 20241213
  2. SYNTHROID [Concomitant]
     Active Substance: LEVOTHYROXINE SODIUM
  3. COREG [Concomitant]
     Active Substance: CARVEDILOL
  4. TORSEMIDE [Concomitant]
     Active Substance: TORSEMIDE
  5. ALBUTEROL [Concomitant]
     Active Substance: ALBUTEROL
  6. nebulizer inhalation solution [Concomitant]
  7. Ipratroprium Bromide [Concomitant]
  8. ALBUTEROL SULFATE [Concomitant]
     Active Substance: ALBUTEROL SULFATE
  9. MUCINEX [Concomitant]
     Active Substance: GUAIFENESIN

REACTIONS (3)
  - Dysarthria [None]
  - Muscle disorder [None]
  - Dysstasia [None]

NARRATIVE: CASE EVENT DATE: 20241213
